FAERS Safety Report 9011826 (Version 1)
Quarter: 2013Q1

REPORT INFORMATION
  Report Type: Spontaneous
  Country: US (occurrence: US)
  Receive Date: 20130113
  Receipt Date: 20130113
  Transmission Date: 20140127
  Serious: Yes (Other)
  Sender: FDA-Public Use
  Company Number: US-009507513-2009SP041183

PATIENT
  Age: 11 Year
  Sex: Male
  Weight: 38.56 kg

DRUGS (5)
  1. PROVENTIL [Suspect]
     Indication: PRODUCT USED FOR UNKNOWN INDICATION
     Dosage: UNK UNK, UNKNOWN
     Route: 055
  2. CLONIDINE HYDROCHLORIDE [Suspect]
     Indication: SLEEP DISORDER
     Dosage: 0.1 MG, QD
     Route: 048
     Dates: start: 20091115, end: 20091115
  3. SINGULAIR [Suspect]
     Indication: PRODUCT USED FOR UNKNOWN INDICATION
  4. CONCERTA [Suspect]
     Indication: PRODUCT USED FOR UNKNOWN INDICATION
  5. ZYRTEC [Suspect]
     Indication: PRODUCT USED FOR UNKNOWN INDICATION

REACTIONS (2)
  - Trismus [Not Recovered/Not Resolved]
  - Hypersensitivity [Unknown]
